FAERS Safety Report 4637610-2 (Version None)
Quarter: 2005Q2

REPORT INFORMATION
  Report Type: 
  Country: None (occurrence: None)
  Receive Date: 20050325
  Receipt Date: 20050114
  Transmission Date: 20051028
  Serious: No
  Sender: FDA-Public Use
  Company Number: USA041184450

PATIENT
  Age: 77 Year
  Sex: Female

DRUGS (10)
  1. EVISTA [Suspect]
     Indication: OSTEOPOROSIS
     Dates: start: 20000203, end: 20030625
  2. FORTEO [Suspect]
     Indication: OSTEOPOROSIS
     Dates: start: 20041119
  3. FOSAMAX [Concomitant]
  4. ACTONEL [Concomitant]
  5. MIACALCIN [Concomitant]
  6. VITAMIN NOS [Concomitant]
  7. CALCIUM GLUCONATE [Concomitant]
  8. MAGNESIUM (MAGNESIUM ASPARTATE) [Concomitant]
  9. VITAMIN E [Concomitant]
  10. BABY ASPIRIN (ACETYLSALCYLIC ACID) [Concomitant]

REACTIONS (10)
  - ABDOMINAL PAIN UPPER [None]
  - BREAST FIBROSIS [None]
  - BREAST MASS [None]
  - HOT FLUSH [None]
  - NASOPHARYNGITIS [None]
  - NIGHT SWEATS [None]
  - OEDEMA PERIPHERAL [None]
  - PAIN [None]
  - PHARYNGOLARYNGEAL PAIN [None]
  - SINUS DISORDER [None]
